FAERS Safety Report 6664537-7 (Version None)
Quarter: 2010Q2

REPORT INFORMATION
  Report Type: 
  Country: None (occurrence: None)
  Receive Date: 20100401
  Receipt Date: 20100322
  Transmission Date: 20101027
  Serious: Yes (Other)
  Sender: FDA-Public Use
  Company Number: SE-PFIZER INC-2010030971

PATIENT
  Sex: Female
  Weight: 58 kg

DRUGS (3)
  1. LIPITOR [Suspect]
     Dosage: 40 MG, 2X/DAY
     Dates: start: 19960101
  2. GLUCOSAMINE [Concomitant]
     Dosage: UNK
  3. MAGNESIUM [Concomitant]
     Dosage: UNK

REACTIONS (3)
  - ANGIOPATHY [None]
  - HAEMATOMA [None]
  - MUSCLE SPASMS [None]
